FAERS Safety Report 10532807 (Version 2)
Quarter: 2014Q4

REPORT INFORMATION
  Report Type: Spontaneous
  Country: IT (occurrence: IT)
  Receive Date: 20141022
  Receipt Date: 20141022
  Transmission Date: 20150529
  Serious: Yes (Hospitalization, Other)
  Sender: FDA-Public Use
  Company Number: IT-RANBAXY-2013R1-68913

PATIENT
  Age: 36 Year
  Sex: Male

DRUGS (1)
  1. TOPIRAMATE. [Suspect]
     Active Substance: TOPIRAMATE
     Indication: EPILEPSY
     Dosage: 200 MG, DAILY
     Route: 065

REACTIONS (6)
  - Heat stroke [Recovering/Resolving]
  - Hyperkalaemia [Recovering/Resolving]
  - Hypertension [Recovering/Resolving]
  - Hypertonia [Recovering/Resolving]
  - Apraxia [Recovering/Resolving]
  - Nystagmus [Recovering/Resolving]
